FAERS Safety Report 9711643 (Version 2)
Quarter: 2013Q4

REPORT INFORMATION
  Report Type: Spontaneous
  Country: US (occurrence: US)
  Receive Date: 20131126
  Receipt Date: 20131126
  Transmission Date: 20140711
  Serious: No
  Sender: FDA-Public Use
  Company Number: US-BRISTOL-MYERS SQUIBB COMPANY-18789891

PATIENT
  Age: 58 Year
  Sex: Female
  Weight: 88.43 kg

DRUGS (2)
  1. BYDUREON [Suspect]
     Indication: TYPE 2 DIABETES MELLITUS
     Dosage: MOST RECENT DOSE 03-APR-2013
     Route: 058
     Dates: start: 20130227
  2. METFORMIN HCL [Suspect]
     Dosage: PREVIOUSLY QID

REACTIONS (3)
  - Injection site nodule [Not Recovered/Not Resolved]
  - Decreased appetite [Unknown]
  - Blood glucose decreased [Unknown]
